FAERS Safety Report 7756122-0 (Version None)
Quarter: 2011Q3

REPORT INFORMATION
  Report Type: 
  Country: None (occurrence: None)
  Receive Date: 20110914
  Receipt Date: 20110901
  Transmission Date: 20111222
  Serious: Yes (Hospitalization, Other)
  Sender: FDA-Public Use
  Company Number: 2011MA003056

PATIENT
  Sex: Female
  Weight: 74.8435 kg

DRUGS (50)
  1. ALBUTEROL [Concomitant]
  2. CLOTRIMAZOLE AND BETAMETHASONE DIPROPIONATE [Concomitant]
  3. INSULIN [Concomitant]
  4. SERTRALINE HYDROCHLORIDE [Concomitant]
  5. SINGULAIR [Concomitant]
  6. SODIUM BICARBONATE [Concomitant]
  7. SUCRALFATE [Concomitant]
  8. COLCHICINE [Concomitant]
  9. DIAZEPAM [Concomitant]
  10. DIOVAN [Concomitant]
  11. LORATADINE [Concomitant]
  12. OXYBUTYNIN [Concomitant]
  13. TEMAZEPAM [Concomitant]
  14. TRICOR [Concomitant]
  15. CLARINEX [Concomitant]
  16. ERYTHROMYCIN [Concomitant]
  17. SIMVASTATIN [Concomitant]
  18. AMPICILLIN SODIUM [Concomitant]
  19. BETHANECHOL [Concomitant]
  20. CALCITRIOL [Concomitant]
  21. ENABLEX [Concomitant]
  22. OMNICEF [Concomitant]
  23. KLOR-CON [Concomitant]
  24. LEXAPRO [Concomitant]
  25. LIPITOR [Concomitant]
  26. LORAZEPAM [Concomitant]
  27. ALPRAZOLAM [Concomitant]
  28. DOXAZOSIN MESYLATE [Concomitant]
  29. FEXOFENADINE [Concomitant]
  30. HYDROCODONE BITARTRATE AND ACETAMINOPHEN [Concomitant]
  31. ORAP [Concomitant]
  32. ACETAMINOPHEN W/ PROPOXYPHENE HCL [Concomitant]
  33. WELCHOL [Concomitant]
  34. METOCLOPRAMIDE [Suspect]
     Indication: HIATUS HERNIA
     Dosage: 10 MG, TID, PO
     Route: 048
     Dates: start: 20051214, end: 20100114
  35. METOCLOPRAMIDE [Suspect]
     Indication: DIABETIC GASTROPARESIS
     Dosage: 10 MG, TID, PO
     Route: 048
     Dates: start: 20051214, end: 20100114
  36. AVELOX [Concomitant]
  37. AZITHROMYCIN [Concomitant]
  38. FERROUS SULFATE TAB [Concomitant]
  39. FLUVIRIN [Concomitant]
  40. FUROSEMIDE [Concomitant]
  41. NEXIUM [Concomitant]
  42. SANCTURA SR [Concomitant]
  43. ATENOLOL [Concomitant]
  44. CEPHALEXIN [Concomitant]
  45. CIPROFLOXACIN [Concomitant]
  46. FELODIPINE [Concomitant]
  47. HYDROXYZINE [Concomitant]
  48. METOLAZONE [Concomitant]
  49. NITROFURANTOIN [Concomitant]
  50. PULMICORT [Concomitant]

REACTIONS (39)
  - DYSTONIA [None]
  - EXTRAPYRAMIDAL DISORDER [None]
  - IMPAIRED GASTRIC EMPTYING [None]
  - CEREBRAL SMALL VESSEL ISCHAEMIC DISEASE [None]
  - VOMITING [None]
  - TREMOR [None]
  - CHOREA [None]
  - BLEPHAROSPASM [None]
  - DIABETES MELLITUS [None]
  - CONTUSION [None]
  - OESOPHAGEAL DISORDER [None]
  - NAUSEA [None]
  - TARDIVE DYSKINESIA [None]
  - MEIGE'S SYNDROME [None]
  - CARPAL TUNNEL SYNDROME [None]
  - ASPIRATION [None]
  - DYSKINESIA [None]
  - EMOTIONAL DISORDER [None]
  - AKATHISIA [None]
  - GAIT DISTURBANCE [None]
  - ECONOMIC PROBLEM [None]
  - GASTROOESOPHAGEAL REFLUX DISEASE [None]
  - DIZZINESS POSTURAL [None]
  - DIABETIC NEUROPATHY [None]
  - RESPIRATORY RATE INCREASED [None]
  - EXCESSIVE EYE BLINKING [None]
  - BURNING SENSATION [None]
  - METABOLIC ALKALOSIS [None]
  - HIATUS HERNIA [None]
  - DYSPHAGIA [None]
  - HYPOAESTHESIA [None]
  - ORTHOSTATIC HYPOTENSION [None]
  - FEELING ABNORMAL [None]
  - SOMNOLENCE [None]
  - DYSPNOEA [None]
  - PULMONARY FIBROSIS [None]
  - RESPIRATORY ALKALOSIS [None]
  - ANXIETY [None]
  - DEHYDRATION [None]
